FAERS Safety Report 13237944 (Version 1)
Quarter: 2017Q1

REPORT INFORMATION
  Report Type: Spontaneous
  Country: US (occurrence: US)
  Receive Date: 20170215
  Receipt Date: 20170215
  Transmission Date: 20170428
  Serious: Yes (Other)
  Sender: FDA-Public Use
  Company Number: None

PATIENT
  Age: 52 Year
  Sex: Female
  Weight: 87.3 kg

DRUGS (2)
  1. COQ10 [Concomitant]
     Active Substance: UBIDECARENONE
  2. COMBIPATCH (ESTRADIOL/NORETHINDRONE ACETATE TRANSDERMAL SYSTEM) [Suspect]
     Active Substance: ESTRADIOL\NORETHINDRONE ACETATE
     Indication: HORMONE THERAPY
     Dosage: 1 PATCH; 2 TIMES A WEEK?
     Route: 061
     Dates: start: 20150309, end: 20161001

REACTIONS (12)
  - Vaginal haemorrhage [None]
  - Product formulation issue [None]
  - Blood pressure increased [None]
  - Nausea [None]
  - Frequent bowel movements [None]
  - Heart rate increased [None]
  - Visual impairment [None]
  - Photophobia [None]
  - Hyperhidrosis [None]
  - Tremor [None]
  - Migraine [None]
  - Abdominal discomfort [None]

NARRATIVE: CASE EVENT DATE: 20170214
